FAERS Safety Report 11620084 (Version 1)
Quarter: 2015Q4

REPORT INFORMATION
  Report Type: Spontaneous
  Country: US (occurrence: US)
  Receive Date: 20151012
  Receipt Date: 20151012
  Transmission Date: 20160304
  Serious: Yes (Hospitalization)
  Sender: FDA-Public Use
  Company Number: US-SMITH AND NEPHEW, INC-2015SMT00386

PATIENT
  Age: 61 Year
  Sex: Male
  Weight: 139.23 kg

DRUGS (4)
  1. REGRANEX [Suspect]
     Active Substance: BECAPLERMIN
     Indication: WOUND
     Dosage: UNK UNK, 1X/DAY
     Route: 061
     Dates: start: 2015
  2. ZYPOYROX [Concomitant]
     Dosage: UNK, 1X/DAY
  3. ALDOSTERONE [Concomitant]
     Active Substance: ALDOSTERONE
     Dosage: UNK, 1X/DAY
  4. ASPIRIN. [Concomitant]
     Active Substance: ASPIRIN
     Dosage: 81 MG, 1X/DAY

REACTIONS (4)
  - Leukocytosis [Unknown]
  - Chest pain [Unknown]
  - Pain [Recovering/Resolving]
  - Pneumonia [Recovered/Resolved]

NARRATIVE: CASE EVENT DATE: 2015
